FAERS Safety Report 9230321 (Version 2)
Quarter: 2013Q4

REPORT INFORMATION
  Report Type: Report from Study
  Country: AU (occurrence: AU)
  Receive Date: 20130415
  Receipt Date: 20131122
  Transmission Date: 20140711
  Serious: Yes (Other)
  Sender: FDA-Public Use
  Company Number: PHHY2013AU035607

PATIENT
  Age: 74 Year
  Sex: Female

DRUGS (3)
  1. ACLASTA [Suspect]
     Indication: FRACTURE
     Dosage: 5 MG, UNK
     Route: 042
     Dates: start: 20120328
  2. OROXINE [Concomitant]
     Indication: HYPOTHYROIDISM
     Dosage: 100 MG, UNK
     Route: 048
  3. LOSAC [Concomitant]
     Indication: GASTROOESOPHAGEAL REFLUX DISEASE
     Dosage: 20 MG, UNK
     Route: 048

REACTIONS (3)
  - Metastases to bone [Unknown]
  - Breast cancer metastatic [Unknown]
  - Bone cancer [Not Recovered/Not Resolved]
